FAERS Safety Report 10280346 (Version 4)
Quarter: 2014Q4

REPORT INFORMATION
  Report Type: Report from Study
  Country: NL (occurrence: NL)
  Receive Date: 20140707
  Receipt Date: 20141014
  Transmission Date: 20150528
  Serious: Yes (Other)
  Sender: FDA-Public Use
  Company Number: PHHO2014NL008345

PATIENT

DRUGS (10)
  1. CETUXIMAB [Suspect]
     Active Substance: CETUXIMAB
     Dosage: 250 MG, QW
     Route: 042
     Dates: start: 20140617
  2. LACTULOSE. [Suspect]
     Active Substance: LACTULOSE
     Dosage: WHEN NEEDED
     Route: 048
     Dates: start: 20140603
  3. OXYCODON [Concomitant]
     Active Substance: OXYCODONE
     Indication: PAIN IN EXTREMITY
     Dosage: 5 MG, QD
     Dates: start: 20140528
  4. LGX818 [Suspect]
     Active Substance: ENCORAFENIB
     Dosage: 150 UNK, UNK
     Route: 048
     Dates: start: 20140617
  5. CETUXIMAB [Suspect]
     Active Substance: CETUXIMAB
     Indication: COLORECTAL CANCER METASTATIC
     Dosage: 400 MG/M2, UNK
     Dates: start: 20140527, end: 20140527
  6. LGX818 [Suspect]
     Active Substance: ENCORAFENIB
     Indication: COLORECTAL CANCER METASTATIC
     Dosage: 200 MG, QD
     Dates: start: 20140527, end: 20140610
  7. CETUXIMAB [Suspect]
     Active Substance: CETUXIMAB
     Dosage: 250 MG/M2, QW
     Dates: start: 20140603, end: 20140610
  8. PARACETAMOL [Suspect]
     Active Substance: ACETAMINOPHEN
     Dosage: 1000 MG, PRN (WHEN NEEDED MAX 4 DD)
     Dates: start: 20140603, end: 20140917
  9. OMEPRAZOLE. [Suspect]
     Active Substance: OMEPRAZOLE
     Indication: GASTROOESOPHAGEAL REFLUX DISEASE
     Dosage: 40 MG, QD
     Dates: start: 20140915
  10. OXAZEPAM. [Suspect]
     Active Substance: OXAZEPAM
     Dosage: UNK
     Dates: start: 20140513, end: 20140715

REACTIONS (1)
  - Neutropenia [Recovered/Resolved]

NARRATIVE: CASE EVENT DATE: 20140603
